FAERS Safety Report 25999943 (Version 1)
Quarter: 2025Q4

REPORT INFORMATION
  Report Type: Spontaneous
  Country: US (occurrence: None)
  Receive Date: 20251104
  Receipt Date: 20251104
  Transmission Date: 20260118
  Serious: Yes (Hospitalization)
  Sender: FDA-CTU
  Company Number: None

PATIENT
  Sex: Female

DRUGS (1)
  1. POMALYST [Suspect]
     Active Substance: POMALIDOMIDE
     Indication: Plasma cell myeloma
     Dosage: TAKE 1 CAPSULE (1 MG TOTAL) BY MOUTH DAILY FOR 21 DAYS, THEN TAKE 7 DAYS OFF. SWALLOW WHOLE  WITH WATER. DO NOT BREAK, CHEW, OR OPEN. TAKE AT ABOUT THE SAME TIME EACH DAY.?
     Route: 048
     Dates: start: 20250218

REACTIONS (2)
  - Hospitalisation [None]
  - Therapy interrupted [None]
